FAERS Safety Report 6806572-1 (Version None)
Quarter: 2010Q2

REPORT INFORMATION
  Report Type: 
  Country: None (occurrence: None)
  Receive Date: 20100629
  Receipt Date: 20080524
  Transmission Date: 20101027
  Serious: No
  Sender: FDA-Public Use
  Company Number: US-PFIZER INC-2008025803

PATIENT
  Age: 46 Year
  Weight: 99.79 kg

DRUGS (1)
  1. VIAGRA [Suspect]
     Indication: ERECTILE DYSFUNCTION

REACTIONS (3)
  - CYANOPSIA [None]
  - HALO VISION [None]
  - VISUAL IMPAIRMENT [None]
